APPROVED DRUG PRODUCT: HYDROMORPHONE HYDROCHLORIDE
Active Ingredient: HYDROMORPHONE HYDROCHLORIDE
Strength: 5MG/5ML
Dosage Form/Route: SOLUTION;ORAL
Application: A207108 | Product #001
Applicant: GENUS LIFESCIENCES INC
Approved: Apr 22, 2020 | RLD: No | RS: No | Type: DISCN